FAERS Safety Report 5646339-3 (Version None)
Quarter: 2008Q1

REPORT INFORMATION
  Report Type: 
  Country: None (occurrence: None)
  Receive Date: 20080227
  Receipt Date: 20080211
  Transmission Date: 20080703
  Serious: Yes (Other)
  Sender: FDA-Public Use
  Company Number: 2008EU000278

PATIENT
  Age: 13 Year
  Sex: Male

DRUGS (1)
  1. PROGRAF [Suspect]
     Dosage: /D
     Dates: start: 20020811, end: 20070913

REACTIONS (2)
  - DRUG LEVEL INCREASED [None]
  - GYNAECOMASTIA [None]
